FAERS Safety Report 23576747 (Version 1)
Quarter: 2024Q1

REPORT INFORMATION
  Report Type: Spontaneous
  Country: US (occurrence: US)
  Receive Date: 20240228
  Receipt Date: 20240228
  Transmission Date: 20240410
  Serious: No
  Sender: FDA-Public Use
  Company Number: US-PRIMUS-2023-US-010944

PATIENT
  Age: 62 Year
  Sex: Female

DRUGS (1)
  1. SERNIVO [Suspect]
     Active Substance: BETAMETHASONE DIPROPIONATE
     Indication: Off label use
     Dosage: APPLY TWICE DAILY TO SCALP FOR 2 WEEKS, AS NEEDED FLARES
     Route: 061
     Dates: start: 20230407, end: 20230426

REACTIONS (2)
  - Migraine [Unknown]
  - Eye pain [Unknown]

NARRATIVE: CASE EVENT DATE: 20230401
